FAERS Safety Report 10957454 (Version 4)
Quarter: 2015Q2

REPORT INFORMATION
  Report Type: Report from Study
  Country: US (occurrence: US)
  Receive Date: 20150326
  Receipt Date: 20150417
  Transmission Date: 20150821
  Serious: Yes (Hospitalization, Other)
  Sender: FDA-Public Use
  Company Number: US-GILEAD-2015-0144226

PATIENT
  Age: 56 Year
  Sex: Female

DRUGS (3)
  1. IRON [Concomitant]
     Active Substance: IRON
  2. AMBRISENTAN [Suspect]
     Active Substance: AMBRISENTAN
     Indication: PRODUCT USED FOR UNKNOWN INDICATION
     Dosage: 5 MG, QD
     Route: 065
     Dates: start: 20140626
  3. VELETRI [Concomitant]
     Active Substance: EPOPROSTENOL

REACTIONS (6)
  - Haemolytic anaemia [Unknown]
  - Blood iron abnormal [Unknown]
  - Haemoglobin decreased [Unknown]
  - Red blood cell abnormality [Unknown]
  - Red blood cell count decreased [Unknown]
  - Biopsy liver [Unknown]

NARRATIVE: CASE EVENT DATE: 2015
